FAERS Safety Report 18745387 (Version 2)
Quarter: 2021Q1

REPORT INFORMATION
  Report Type: Spontaneous
  Country: US (occurrence: US)
  Receive Date: 20210115
  Receipt Date: 20210226
  Transmission Date: 20210419
  Serious: Yes (Other)
  Sender: FDA-Public Use
  Company Number: US-PFIZER INC-2021025170

PATIENT
  Age: 75 Year
  Sex: Male

DRUGS (2)
  1. INLYTA [Suspect]
     Active Substance: AXITINIB
     Indication: RENAL CELL CARCINOMA
     Dosage: 5 MG, 2X/DAY; (5MG IN THE MORNING AND AT NIGHT)
  2. INLYTA [Suspect]
     Active Substance: AXITINIB
     Dosage: 3 MG, 2X/DAY; (3 MG IN THE MORNING AND AT NIGHT)

REACTIONS (19)
  - Renal impairment [Recovering/Resolving]
  - Gait disturbance [Recovering/Resolving]
  - Tooth disorder [Recovering/Resolving]
  - Weight decreased [Recovering/Resolving]
  - Cerebral disorder [Recovering/Resolving]
  - Dysphagia [Recovering/Resolving]
  - Skin lesion [Recovering/Resolving]
  - Cardiac disorder [Recovering/Resolving]
  - Memory impairment [Recovering/Resolving]
  - Stomatitis [Recovering/Resolving]
  - Chest pain [Recovering/Resolving]
  - Hepatic function abnormal [Recovering/Resolving]
  - Back disorder [Recovering/Resolving]
  - Pain [Recovering/Resolving]
  - Toothache [Recovering/Resolving]
  - Balance disorder [Recovering/Resolving]
  - Tongue disorder [Recovering/Resolving]
  - Blister [Recovering/Resolving]
  - Eating disorder [Recovering/Resolving]
